FAERS Safety Report 19500487 (Version 1)
Quarter: 2021Q3

REPORT INFORMATION
  Report Type: Spontaneous
  Country: DE (occurrence: DE)
  Receive Date: 20210706
  Receipt Date: 20210706
  Transmission Date: 20211014
  Serious: Yes (Hospitalization, Other)
  Sender: FDA-Public Use
  Company Number: DE-BAXTER-2021BAX019357

PATIENT
  Age: 87 Year
  Sex: Male
  Weight: 70 kg

DRUGS (13)
  1. ALLOPURINOL. [Concomitant]
     Active Substance: ALLOPURINOL
     Indication: PRODUCT USED FOR UNKNOWN INDICATION
     Dosage: 300 MG, 1?0?0?0, TABLETS
     Route: 048
  2. TORASEMIDE [Concomitant]
     Active Substance: TORSEMIDE
     Indication: PRODUCT USED FOR UNKNOWN INDICATION
     Dosage: 50 MG, 1?0?0?0, TABLETS
     Route: 048
  3. RITUXIMAB. [Suspect]
     Active Substance: RITUXIMAB
     Indication: PRODUCT USED FOR UNKNOWN INDICATION
     Dosage: ACCORDING TO THE SCHEME
     Route: 065
  4. SIMVASTATIN. [Concomitant]
     Active Substance: SIMVASTATIN
     Indication: PRODUCT USED FOR UNKNOWN INDICATION
     Dosage: 10 MG, 1?0?0?0, TABLETS
     Route: 048
  5. BENDAMUSTIN YES PDS 2,5 MG/ML PULVER FUR EIN KONZENTRAT ZUR HERSTELLUN [Suspect]
     Active Substance: BENDAMUSTINE HYDROCHLORIDE
     Indication: PRODUCT USED FOR UNKNOWN INDICATION
     Dosage: ACCORDING TO THE SCHEME, INJECTION?/INFUSION SOLUTION
     Route: 042
  6. TORASEMIDE [Concomitant]
     Active Substance: TORSEMIDE
     Dosage: 100 MG, 1?0?0?0, TABLETS
     Route: 048
  7. OPIPRAMOL [Concomitant]
     Active Substance: OPIPRAMOL
     Indication: PRODUCT USED FOR UNKNOWN INDICATION
     Dosage: 100 MG, 0?1?0?0, DROPS
     Route: 048
  8. ZOLPIDEM [Concomitant]
     Active Substance: ZOLPIDEM TARTRATE
     Indication: PRODUCT USED FOR UNKNOWN INDICATION
     Dosage: 10 MG, NEED, TABLETS
     Route: 048
  9. PANTOPRAZOLE [Concomitant]
     Active Substance: PANTOPRAZOLE
     Indication: PRODUCT USED FOR UNKNOWN INDICATION
     Dosage: 20 MG, NEED, SUSTAINED RELEASE TABLETS
     Route: 048
  10. HAWTHORN [Concomitant]
     Active Substance: CRATAEGUS LAEVIGATA FRUIT
     Indication: PRODUCT USED FOR UNKNOWN INDICATION
     Dosage: 600 MG, 1?0?0?0, TABLETS
     Route: 048
  11. METAMIZOLE [Concomitant]
     Active Substance: METAMIZOLE
     Indication: PRODUCT USED FOR UNKNOWN INDICATION
     Dosage: 500 MG, NEED, TABLETS
     Route: 048
  12. METOPROLOL. [Concomitant]
     Active Substance: METOPROLOL
     Indication: PRODUCT USED FOR UNKNOWN INDICATION
     Dosage: 47.5 MG, 1?0.5?0?0, DELAY?TABLETS
     Route: 048
  13. POTASSIUM CHLORIDE. [Concomitant]
     Active Substance: POTASSIUM CHLORIDE
     Indication: PRODUCT USED FOR UNKNOWN INDICATION
     Dosage: 600 MG, 1?0?0?0, CAPSULES
     Route: 048

REACTIONS (3)
  - General physical health deterioration [Unknown]
  - Melaena [Unknown]
  - Fatigue [Unknown]
